FAERS Safety Report 20065914 (Version 1)
Quarter: 2021Q4

REPORT INFORMATION
  Report Type: Spontaneous
  Country: BR (occurrence: BR)
  Receive Date: 20211114
  Receipt Date: 20211114
  Transmission Date: 20220303
  Serious: Yes (Life-Threatening, Other)
  Sender: FDA-Public Use
  Company Number: None

PATIENT
  Age: 66 Year
  Sex: Male
  Weight: 70 kg

DRUGS (14)
  1. ALENDRONATE SODIUM [Suspect]
     Active Substance: ALENDRONATE SODIUM
     Dosage: UNK, QW
     Route: 048
  2. CABERGOLINE [Suspect]
     Active Substance: CABERGOLINE
     Dosage: 1 DOSAGE FORM, QD
     Route: 048
     Dates: start: 2010
  3. SANDOSTATIN LAR DEPOT [Suspect]
     Active Substance: OCTREOTIDE ACETATE
     Dosage: 40 MILLIGRAM, QM
     Route: 030
     Dates: start: 20100114
  4. SANDOSTATIN LAR DEPOT [Suspect]
     Active Substance: OCTREOTIDE ACETATE
     Dosage: 30 MILLIGRAM, QM
     Route: 030
     Dates: start: 20100301, end: 201806
  5. SANDOSTATIN LAR DEPOT [Suspect]
     Active Substance: OCTREOTIDE ACETATE
     Dosage: 40 MILLIGRAM, QM
     Dates: start: 201003
  6. SANDOSTATIN LAR DEPOT [Suspect]
     Active Substance: OCTREOTIDE ACETATE
     Dosage: 20 MILLIGRAM, QM
     Route: 030
     Dates: start: 201807
  7. SANDOSTATIN LAR DEPOT [Suspect]
     Active Substance: OCTREOTIDE ACETATE
     Dosage: 40 MILLIGRAM
     Route: 030
  8. SANDOSTATIN LAR DEPOT [Suspect]
     Active Substance: OCTREOTIDE ACETATE
     Dosage: 40 MILLIGRAM
     Route: 030
     Dates: start: 20181227
  9. SANDOSTATIN LAR DEPOT [Suspect]
     Active Substance: OCTREOTIDE ACETATE
     Dosage: 40 MILLIGRAM, QM
     Route: 030
  10. SANDOSTATIN LAR DEPOT [Suspect]
     Active Substance: OCTREOTIDE ACETATE
     Dosage: UNK
  11. SANDOSTATIN LAR DEPOT [Suspect]
     Active Substance: OCTREOTIDE ACETATE
     Dosage: UNK
  12. SANDOSTATIN LAR DEPOT [Suspect]
     Active Substance: OCTREOTIDE ACETATE
     Dosage: UNK
  13. PREDNISONE [Concomitant]
     Active Substance: PREDNISONE
     Dosage: UNK
  14. TESTOSTERONE [Concomitant]
     Active Substance: TESTOSTERONE
     Dosage: UNK
     Dates: start: 2010

REACTIONS (36)
  - Feeling abnormal [Unknown]
  - Brain neoplasm [Unknown]
  - Pain [Not Recovered/Not Resolved]
  - Gait disturbance [Not Recovered/Not Resolved]
  - Spinal deformity [Not Recovered/Not Resolved]
  - Thyroid mass [Recovered/Resolved]
  - Thyroid mass [Recovered/Resolved]
  - Heart rate irregular [Recovered/Resolved]
  - Loss of consciousness [Unknown]
  - Back pain [Not Recovered/Not Resolved]
  - Spinal disorder [Not Recovered/Not Resolved]
  - Fall [Recovered/Resolved]
  - Osteoporosis [Not Recovered/Not Resolved]
  - Gait disturbance [Unknown]
  - Hormone level abnormal [Unknown]
  - Weight decreased [Not Recovered/Not Resolved]
  - Amnesia [Unknown]
  - Depressed mood [Unknown]
  - Suture related complication [Unknown]
  - Application site pain [Unknown]
  - Dyspnoea [Not Recovered/Not Resolved]
  - Thyroid disorder [Unknown]
  - Influenza [Recovered/Resolved]
  - Osteoarthritis [Not Recovered/Not Resolved]
  - Viral infection [Recovered/Resolved]
  - Insomnia [Unknown]
  - Muscular weakness [Unknown]
  - Decreased appetite [Not Recovered/Not Resolved]
  - Fatigue [Not Recovered/Not Resolved]
  - Nausea [Recovered/Resolved]
  - Abdominal pain [Recovered/Resolved]
  - Dizziness [Recovered/Resolved]
  - Back pain [Not Recovered/Not Resolved]
  - Asthenia [Recovering/Resolving]
  - Blood pressure increased [Unknown]
  - Malaise [Unknown]

NARRATIVE: CASE EVENT DATE: 20190201
